FAERS Safety Report 17415082 (Version 1)
Quarter: 2020Q1

REPORT INFORMATION
  Report Type: Spontaneous
  Country: KR (occurrence: KR)
  Receive Date: 20200213
  Receipt Date: 20200213
  Transmission Date: 20200409
  Serious: Yes (Hospitalization, Other)
  Sender: FDA-Public Use
  Company Number: KR-BAYER-2020-021703

PATIENT

DRUGS (1)
  1. STIVARGA [Suspect]
     Active Substance: REGORAFENIB
     Dosage: 160 MG, QD 4 WEEKS WITH 3 WEEKS ON AND 1 WEEK OFF
     Route: 048

REACTIONS (5)
  - Metastases to abdominal cavity [None]
  - Nausea [None]
  - Hospitalisation [None]
  - Wrong technique in product usage process [None]
  - Dysphagia [None]
